FAERS Safety Report 19665666 (Version 1)
Quarter: 2021Q3

REPORT INFORMATION
  Report Type: Spontaneous
  Country: CN (occurrence: CN)
  Receive Date: 20210806
  Receipt Date: 20210806
  Transmission Date: 20211014
  Serious: Yes (Other)
  Sender: FDA-Public Use
  Company Number: CN-JNJFOC-20210805203

PATIENT
  Age: 6 Year
  Sex: Female
  Weight: 21 kg

DRUGS (1)
  1. CHILDRENS MOTRIN [Suspect]
     Active Substance: IBUPROFEN
     Indication: ANTIPYRESIS
     Route: 048
     Dates: start: 20210711, end: 20210713

REACTIONS (1)
  - Granulocyte count decreased [Recovering/Resolving]

NARRATIVE: CASE EVENT DATE: 20210714
